FAERS Safety Report 9184722 (Version 2)
Quarter: 2013Q2

REPORT INFORMATION
  Report Type: Spontaneous
  Country: NO (occurrence: NO)
  Receive Date: 20130324
  Receipt Date: 20130415
  Transmission Date: 20140414
  Serious: Yes (Other)
  Sender: FDA-Public Use
  Company Number: NO-BRISTOL-MYERS SQUIBB COMPANY-18595678

PATIENT
  Sex: Female

DRUGS (3)
  1. METFORMIN HCL [Suspect]
     Dosage: DOSE INCREASED: 1000MG: 2/DAY
     Dates: start: 2007
  2. GALVUS [Suspect]
     Indication: DIABETES MELLITUS
     Dates: start: 201203
  3. AMARYL [Suspect]
     Dosage: 2MG

REACTIONS (4)
  - Glycosylated haemoglobin increased [Unknown]
  - Latent autoimmune diabetes in adults [Unknown]
  - Blood glucose increased [Unknown]
  - Drug ineffective [Unknown]
